FAERS Safety Report 9385054 (Version 1)
Quarter: 2013Q3

REPORT INFORMATION
  Report Type: Report from Study
  Country: DE (occurrence: TR)
  Receive Date: 20130705
  Receipt Date: 20130705
  Transmission Date: 20140515
  Serious: Yes (Other)
  Sender: FDA-Public Use
  Company Number: DE-ACTELION-A-US2013-85455

PATIENT
  Age: 16 Year
  Sex: Male

DRUGS (1)
  1. VENTAVIS [Suspect]
     Indication: PULMONARY ARTERIAL HYPERTENSION
     Dosage: UNK, 9 TIMES DAILY
     Route: 055
     Dates: start: 20110331, end: 20130628

REACTIONS (1)
  - Ventricular septal defect repair [Unknown]
